FAERS Safety Report 9377722 (Version 1)
Quarter: 2013Q2

REPORT INFORMATION
  Report Type: Spontaneous
  Country: US (occurrence: None)
  Receive Date: 20130625
  Receipt Date: 20130625
  Transmission Date: 20140414
  Serious: Yes (Other)
  Sender: FDA-Public Use
  Company Number: SYM-2013-04896

PATIENT
  Age: 81 Year
  Sex: Female

DRUGS (1)
  1. IMIQUIMOD [Suspect]
     Indication: SQUAMOUS CELL CARCINOMA
     Dosage: 5 DAYS A WEEK
     Route: 061

REACTIONS (1)
  - Hyperkeratosis [None]
